FAERS Safety Report 4332328-8 (Version None)
Quarter: 2004Q2

REPORT INFORMATION
  Report Type: 
  Country: None (occurrence: None)
  Receive Date: 20040401
  Receipt Date: 20040316
  Transmission Date: 20050107
  Serious: No
  Sender: FDA-Public Use
  Company Number: 7667

PATIENT
  Age: 13 Year
  Sex: Male

DRUGS (4)
  1. METHOTREXATE [Suspect]
     Indication: PSORIATIC ARTHROPATHY
     Dosage: 7.5 MG WEEKLY/5 MG WEEKLY/2.5 MG WEEKLY
  2. METHOTREXATE [Suspect]
     Indication: PSORIATIC ARTHROPATHY
     Dosage: 7.5 MG WEEKLY/5 MG WEEKLY/2.5 MG WEEKLY
  3. METHOTREXATE [Suspect]
     Indication: PSORIATIC ARTHROPATHY
     Dosage: 7.5 MG WEEKLY/5 MG WEEKLY/2.5 MG WEEKLY
  4. NAPROXEN [Concomitant]

REACTIONS (3)
  - AMBLYOPIA [None]
  - CARDIOMYOPATHY [None]
  - REFRACTION DISORDER [None]
